FAERS Safety Report 11626373 (Version 1)
Quarter: 2015Q4

REPORT INFORMATION
  Report Type: Spontaneous
  Country: US (occurrence: US)
  Receive Date: 20151013
  Receipt Date: 20151013
  Transmission Date: 20160304
  Serious: No
  Sender: FDA-Public Use
  Company Number: US-ROCHE-151

PATIENT
  Age: 26 Year
  Sex: Male
  Weight: 68.6 kg

DRUGS (3)
  1. NAPROSYN [Suspect]
     Active Substance: NAPROXEN
     Indication: RHEUMATOID ARTHRITIS
     Dosage: SINGLE DOSE
     Route: 048
     Dates: start: 19761216, end: 19761216
  2. COGENTIN [Concomitant]
     Active Substance: BENZTROPINE MESYLATE
     Route: 065
  3. PROLIXIN [Concomitant]
     Active Substance: FLUPHENAZINE HYDROCHLORIDE
     Route: 065

REACTIONS (3)
  - Nausea [Recovered/Resolved]
  - Dyspepsia [Unknown]
  - Overdose [Unknown]

NARRATIVE: CASE EVENT DATE: 19761217
